FAERS Safety Report 12902521 (Version 1)
Quarter: 2016Q4

REPORT INFORMATION
  Report Type: Spontaneous
  Country: US (occurrence: US)
  Receive Date: 20161101
  Receipt Date: 20161101
  Transmission Date: 20170207
  Serious: Yes (Disabling)
  Sender: FDA-Public Use
  Company Number: None

PATIENT
  Age: 51 Year
  Sex: Female
  Weight: 54 kg

DRUGS (10)
  1. MAGNESIUM [Concomitant]
     Active Substance: MAGNESIUM
  2. NIACIN. [Concomitant]
     Active Substance: NIACIN
  3. PRAVASTATIN. [Suspect]
     Active Substance: PRAVASTATIN
     Indication: BLOOD CHOLESTEROL INCREASED
     Dosage: ?          QUANTITY:1 TABLET(S);?
     Route: 048
  4. PROBIOTIC [Concomitant]
     Active Substance: PROBIOTICS NOS
  5. VIT B COMPLEX [Concomitant]
  6. LEVOTHYROXINE. [Concomitant]
     Active Substance: LEVOTHYROXINE
  7. MULTI VITAMIN [Concomitant]
     Active Substance: VITAMINS
  8. VITAMIN D [Concomitant]
     Active Substance: CHOLECALCIFEROL
  9. LORATADINE. [Concomitant]
     Active Substance: LORATADINE
  10. ASPIRIN. [Concomitant]
     Active Substance: ASPIRIN

REACTIONS (4)
  - Memory impairment [None]
  - Confusional state [None]
  - Pain [None]
  - Abasia [None]
